FAERS Safety Report 9992690 (Version 1)
Quarter: 2014Q1

REPORT INFORMATION
  Report Type: Report from Study
  Country: US (occurrence: US)
  Receive Date: 20140310
  Receipt Date: 20140310
  Transmission Date: 20141002
  Serious: No
  Sender: FDA-Public Use
  Company Number: US-ABBVIE-13P-163-1063766-00

PATIENT
  Age: 44 Year
  Sex: Female
  Weight: 84.44 kg

DRUGS (3)
  1. LUPRON DEPOT [Suspect]
     Indication: ANAEMIA
     Dates: start: 2011, end: 2011
  2. LUPRON DEPOT [Suspect]
     Dates: start: 20121015
  3. VITAMIN B12 [Concomitant]
     Indication: VITAMIN SUPPLEMENTATION

REACTIONS (1)
  - Vaginal haemorrhage [Not Recovered/Not Resolved]
